FAERS Safety Report 21475224 (Version 1)
Quarter: 2022Q4

REPORT INFORMATION
  Report Type: Spontaneous
  Country: GB (occurrence: GB)
  Receive Date: 20221019
  Receipt Date: 20221019
  Transmission Date: 20230112
  Serious: Yes (Other)
  Sender: FDA-Public Use
  Company Number: GB-MHRA-MED-202210020927073870-PFVHD

PATIENT
  Age: 54 Year
  Sex: Female

DRUGS (2)
  1. FLUCONAZOLE [Suspect]
     Active Substance: FLUCONAZOLE
     Indication: Candida infection
     Dosage: 50 MILLIGRAM, ONCE A DAY(AT NIGHT)
     Route: 065
  2. GENTAMICIN [Concomitant]
     Active Substance: GENTAMICIN
     Indication: Urinary tract infection
     Dosage: UNK
     Route: 065
     Dates: start: 20220901, end: 20220901

REACTIONS (4)
  - Swelling face [Unknown]
  - Gingival swelling [Unknown]
  - Pharyngeal swelling [Unknown]
  - Burning sensation [Unknown]

NARRATIVE: CASE EVENT DATE: 20220901
